FAERS Safety Report 6053219-0 (Version None)
Quarter: 2009Q1

REPORT INFORMATION
  Report Type: 
  Country: None (occurrence: None)
  Receive Date: 20090123
  Receipt Date: 20081120
  Transmission Date: 20090719
  Serious: Yes (Other)
  Sender: FDA-Public Use
  Company Number: 001#1#2008-00649

PATIENT
  Sex: Female
  Weight: 60 kg

DRUGS (5)
  1. LACOSAMIDE [Suspect]
     Dosage: (50 MG BID ORAL), (150 MG ORAL)
     Route: 048
     Dates: start: 20081021, end: 20080101
  2. LACOSAMIDE [Suspect]
     Dosage: (50 MG BID ORAL), (150 MG ORAL)
     Route: 048
     Dates: start: 20080101
  3. ZENTROPIL /00017401/ [Concomitant]
  4. LUMINAL /00023201/ [Concomitant]
  5. LUMINALETTEN [Concomitant]

REACTIONS (1)
  - SUICIDE ATTEMPT [None]
